FAERS Safety Report 6023135-9 (Version None)
Quarter: 2008Q4

REPORT INFORMATION
  Report Type: 
  Country: None (occurrence: None)
  Receive Date: 20081230
  Receipt Date: 20081218
  Transmission Date: 20090506
  Serious: Yes (Hospitalization)
  Sender: FDA-Public Use
  Company Number: US-AMGEN-QUU324712

PATIENT
  Sex: Female

DRUGS (2)
  1. ENBREL [Suspect]
     Indication: RHEUMATOID ARTHRITIS
     Route: 058
  2. METHOTREXATE [Concomitant]

REACTIONS (7)
  - ACCIDENT [None]
  - ARTHRALGIA [None]
  - INJECTION SITE IRRITATION [None]
  - PATELLA FRACTURE [None]
  - POST PROCEDURAL INFECTION [None]
  - RHEUMATOID FACTOR INCREASED [None]
  - TIBIA FRACTURE [None]
